FAERS Safety Report 6788527-9 (Version None)
Quarter: 2010Q2

REPORT INFORMATION
  Report Type: 
  Country: None (occurrence: None)
  Receive Date: 20100623
  Receipt Date: 20080318
  Transmission Date: 20101027
  Serious: No
  Sender: FDA-Public Use
  Company Number: US-PFIZER INC-2008025144

PATIENT
  Sex: Female

DRUGS (9)
  1. XALATAN [Suspect]
     Indication: GLAUCOMA
     Dates: start: 20070101
  2. CARDIOVASCULAR SYSTEM DRUGS [Concomitant]
  3. HYDROCHLOROTHIAZIDE [Concomitant]
  4. ZANTAC [Concomitant]
  5. VITAMINS [Concomitant]
  6. DRUG, UNSPECIFIED [Concomitant]
  7. OMEGA [Concomitant]
  8. LINSEED OIL [Concomitant]
  9. HERBAL PREPARATION [Concomitant]

REACTIONS (2)
  - EYE PRURITUS [None]
  - VISION BLURRED [None]
